FAERS Safety Report 7415213-4 (Version None)
Quarter: 2011Q2

REPORT INFORMATION
  Report Type: 
  Country: None (occurrence: None)
  Receive Date: 20110414
  Receipt Date: 20110411
  Transmission Date: 20111010
  Serious: No
  Sender: FDA-Public Use
  Company Number: US-TEVA-276360USA

PATIENT
  Sex: Female
  Weight: 46.308 kg

DRUGS (5)
  1. PLAN B ONE-STEP [Suspect]
     Indication: POST COITAL CONTRACEPTION
     Dosage: 1.5 MILLIGRAM;
     Route: 048
     Dates: start: 20110404, end: 20110404
  2. ADVAIR HFA [Concomitant]
     Indication: ASTHMA
  3. ALBUTEROL [Concomitant]
     Indication: ASTHMA
  4. CLONIDINE [Concomitant]
     Indication: BIPOLAR DISORDER
  5. TRINESSA [Concomitant]
     Indication: CONTRACEPTION

REACTIONS (1)
  - NAUSEA [None]
